FAERS Safety Report 24743032 (Version 2)
Quarter: 2025Q1

REPORT INFORMATION
  Report Type: Report from Study
  Country: US (occurrence: US)
  Receive Date: 20241217
  Receipt Date: 20250103
  Transmission Date: 20250409
  Serious: Yes (Other)
  Sender: BAYER HEALTHCARE PHARMACEUTICALS INC.
  Company Number: US-BAYER-2024A174370

PATIENT
  Sex: Male

DRUGS (4)
  1. ADEMPAS [Suspect]
     Active Substance: RIOCIGUAT
     Indication: Pulmonary arterial hypertension
  2. ADEMPAS [Suspect]
     Active Substance: RIOCIGUAT
     Indication: Pulmonary arterial hypertension
     Dosage: 2.5 MG, TID
     Route: 048
     Dates: start: 202104
  3. UPTRAVI [Concomitant]
     Active Substance: SELEXIPAG
  4. CORTICOTROPIN [Concomitant]
     Active Substance: CORTICOTROPIN

REACTIONS (4)
  - Blood pressure abnormal [None]
  - Hypotension [None]
  - Pain [Recovering/Resolving]
  - Dizziness [None]
